FAERS Safety Report 5528630-4 (Version None)
Quarter: 2007Q4

REPORT INFORMATION
  Report Type: 
  Country: None (occurrence: None)
  Receive Date: 20071119
  Receipt Date: 20070709
  Transmission Date: 20080405
  Serious: Yes (Hospitalization)
  Sender: FDA-Public Use
  Company Number: 2007-BP-16961BP

PATIENT
  Age: 52 Year
  Sex: Female

DRUGS (3)
  1. MICARDIS HCT [Suspect]
     Indication: CEREBROVASCULAR ACCIDENT PROPHYLAXIS
     Dosage: (SEE TEXT,40MG/12.5MG),PO
     Route: 048
  2. MICARDIS HCT [Suspect]
     Indication: PROPHYLAXIS
     Dosage: (SEE TEXT,40MG/12.5MG),PO
     Route: 048
  3. MICARDIS HCT [Suspect]
     Indication: TRANSIENT ISCHAEMIC ATTACK
     Dosage: (SEE TEXT,40MG/12.5MG),PO
     Route: 048

REACTIONS (1)
  - RHABDOMYOLYSIS [None]
